FAERS Safety Report 7265083-2 (Version None)
Quarter: 2011Q1

REPORT INFORMATION
  Report Type: 
  Country: None (occurrence: None)
  Receive Date: 20110131
  Receipt Date: 20110127
  Transmission Date: 20110831
  Serious: Yes (Hospitalization)
  Sender: FDA-Public Use
  Company Number: FR-ABBOTT-10P-056-0691283-00

PATIENT
  Sex: Female

DRUGS (5)
  1. HUMIRA [Suspect]
     Indication: SPONDYLOARTHROPATHY
  2. HUMIRA [Suspect]
     Indication: RHEUMATOID ARTHRITIS
  3. ENBREL [Concomitant]
     Indication: RHEUMATOID ARTHRITIS
  4. HUMIRA [Suspect]
     Indication: CROHN'S DISEASE
     Dates: start: 20080101, end: 20101201
  5. ENBREL [Concomitant]
     Indication: CROHN'S DISEASE
     Dates: start: 20101201

REACTIONS (7)
  - TOXIC SKIN ERUPTION [None]
  - TOXICITY TO VARIOUS AGENTS [None]
  - LIVER DISORDER [None]
  - ACNE [None]
  - PRURITUS [None]
  - RASH GENERALISED [None]
  - RASH ERYTHEMATOUS [None]
